FAERS Safety Report 15352578 (Version 1)
Quarter: 2018Q3

REPORT INFORMATION
  Report Type: Spontaneous
  Country: NL (occurrence: NL)
  Receive Date: 20180905
  Receipt Date: 20180905
  Transmission Date: 20181010
  Serious: Yes (Hospitalization)
  Sender: FDA-Public Use
  Company Number: PHHY2018NL088767

PATIENT
  Age: 75 Year
  Sex: Male
  Weight: 68 kg

DRUGS (9)
  1. SALBUTAMOL [Concomitant]
     Active Substance: ALBUTEROL
     Indication: PRODUCT USED FOR UNKNOWN INDICATION
     Dosage: 100 UG, QD (3 X PER DAG 1 DOSIS)
     Route: 065
  2. NICOTINE. [Concomitant]
     Active Substance: NICOTINE
     Indication: PRODUCT USED FOR UNKNOWN INDICATION
     Dosage: 1 ?G/L, QD (1 X PER DAG 1 STUK)
     Route: 065
  3. PARACETAMOL [Concomitant]
     Active Substance: ACETAMINOPHEN
     Indication: PRODUCT USED FOR UNKNOWN INDICATION
     Dosage: 1000 MG, QD (4 X PER DAG 1 STUK)
     Route: 065
  4. RIVAROXABAN [Concomitant]
     Active Substance: RIVAROXABAN
     Indication: PRODUCT USED FOR UNKNOWN INDICATION
     Dosage: 20 MG, QD (1 X PER DAG 1 STUK)
     Route: 065
  5. LAMOTRIGINE. [Suspect]
     Active Substance: LAMOTRIGINE
     Indication: EPILEPSY
     Dosage: 25 MG, QD (1 DD 25 MG)
     Route: 065
     Dates: start: 20180705, end: 20180719
  6. VALPROIC ACID. [Concomitant]
     Active Substance: VALPROIC ACID
     Indication: PRODUCT USED FOR UNKNOWN INDICATION
     Dosage: 500 MG, QD (3 X PER DAG 1 STUK)
     Route: 065
  7. CEFUROXIM [Concomitant]
     Active Substance: CEFUROXIME
     Indication: PRODUCT USED FOR UNKNOWN INDICATION
     Dosage: 1500 MG, QD (3 X PER DAG 1500 MG)
     Route: 065
  8. LORAZEPAM. [Concomitant]
     Active Substance: LORAZEPAM
     Indication: PRODUCT USED FOR UNKNOWN INDICATION
     Dosage: 1 MG, QD (ZO NODIG, 1 X PER DAG 1 STUK ZO NODIG HERHALEN TOT RUSTIG)
     Route: 065
  9. COLECALCIFEROL [Concomitant]
     Active Substance: CHOLECALCIFEROL
     Indication: PRODUCT USED FOR UNKNOWN INDICATION
     Dosage: 800 IU, QD (1 X PER DAG 1 STUK)
     Route: 065

REACTIONS (5)
  - Blood pressure decreased [Recovered/Resolved]
  - Rash [Recovered/Resolved]
  - Face oedema [Recovered/Resolved]
  - Drug reaction with eosinophilia and systemic symptoms [Recovered/Resolved]
  - Eosinophilia [Recovered/Resolved]

NARRATIVE: CASE EVENT DATE: 20180718
